FAERS Safety Report 11734509 (Version 1)
Quarter: 2015Q4

REPORT INFORMATION
  Report Type: Spontaneous
  Country: US (occurrence: None)
  Receive Date: 20151112
  Receipt Date: 20151112
  Transmission Date: 20160304
  Serious: No
  Sender: FDA-Public Use
  Company Number: None

PATIENT
  Age: 47 Year
  Sex: Female

DRUGS (6)
  1. TYKERB [Suspect]
     Active Substance: LAPATINIB DITOSYLATE
     Indication: BREAST CANCER
     Dosage: 5 TABS
     Route: 048
     Dates: start: 20151026
  2. ONDANSETRON [Concomitant]
     Active Substance: ONDANSETRON
  3. SPIRONOLACT [Concomitant]
  4. LEVETIRACETA [Concomitant]
  5. PROCHLORPER [Concomitant]
  6. DEXAMETHASONE. [Concomitant]
     Active Substance: DEXAMETHASONE

REACTIONS (1)
  - Dehydration [None]
